FAERS Safety Report 16684065 (Version 1)
Quarter: 2019Q3

REPORT INFORMATION
  Report Type: Spontaneous
  Country: DE (occurrence: DE)
  Receive Date: 20190808
  Receipt Date: 20190808
  Transmission Date: 20191004
  Serious: Yes (Hospitalization)
  Sender: FDA-Public Use
  Company Number: DE-JNJFOC-20190807732

PATIENT
  Age: 91 Year
  Sex: Male

DRUGS (5)
  1. METOPROLOL. [Concomitant]
     Active Substance: METOPROLOL
     Dosage: 50 MG, OM
  2. PRAMIPEXOL [Concomitant]
     Active Substance: PRAMIPEXOLE
     Dosage: 0.18 MG, QD
  3. RIVAROXABAN [Suspect]
     Active Substance: RIVAROXABAN
     Indication: PRODUCT USED FOR UNKNOWN INDICATION
     Dosage: 15 MG, OM
     Route: 048
  4. VESIKUR [Concomitant]
     Active Substance: SOLIFENACIN SUCCINATE
     Dosage: 5 MG, OM
  5. RAMIPRIL. [Concomitant]
     Active Substance: RAMIPRIL
     Dosage: 2.5 MG, OM

REACTIONS (4)
  - Hypotension [Unknown]
  - Traumatic haemorrhage [Unknown]
  - Asthenia [Unknown]
  - Discoloured vomit [Unknown]
